FAERS Safety Report 8196728-0 (Version None)
Quarter: 2012Q1

REPORT INFORMATION
  Report Type: 
  Country: None (occurrence: None)
  Receive Date: 20120309
  Receipt Date: 20120301
  Transmission Date: 20120608
  Serious: Yes (Hospitalization, Other)
  Sender: FDA-Public Use
  Company Number: PHEH2008US07166

PATIENT
  Sex: Female

DRUGS (58)
  1. ZOMETA [Suspect]
     Dates: start: 20010101, end: 20050201
  2. VICODIN [Concomitant]
     Dosage: UNK
  3. PERIDEX [Concomitant]
     Dosage: UNK
  4. PREDNISONE [Concomitant]
     Dosage: UNK
  5. PROCHLORPERAZINE [Concomitant]
  6. LIDOCAINE [Concomitant]
  7. TAXOTERE [Concomitant]
     Indication: BREAST CANCER
  8. DECADRON [Concomitant]
     Dosage: UNK
  9. DOXYCYCLINE [Concomitant]
     Dosage: 100 MG / BID
  10. PREVIDENT [Concomitant]
  11. FENTANYL [Concomitant]
  12. ANZEMET [Concomitant]
  13. METRONIDAZOLE [Concomitant]
  14. LEVAQUIN [Concomitant]
  15. PROAIR (FLUTICASONE PROPIONATE) [Concomitant]
  16. LACTINEX [Concomitant]
  17. CHERATUSSIN [Concomitant]
  18. ALBUTEROL [Concomitant]
     Dosage: UNK
  19. HYDROCORTISONE [Concomitant]
     Route: 061
  20. TYLENOL [Concomitant]
  21. TORADOL [Concomitant]
  22. SOLU-MEDROL [Concomitant]
  23. LACTULOSE [Concomitant]
  24. DIAZEPAM [Concomitant]
  25. AMOXICILLIN [Concomitant]
  26. CHEMOTHERAPEUTICS NOS [Concomitant]
     Dosage: UNK
  27. CIPROFLOXACIN [Concomitant]
  28. NASAREL [Concomitant]
  29. MEGESTROL ACETATE [Concomitant]
  30. FLUID/ELECTROLYTE REPLACEMENT THERAPY [Concomitant]
  31. SINGULAIR [Concomitant]
     Dosage: UNK
  32. XELODA [Concomitant]
     Indication: BREAST CANCER
  33. AVELOX [Concomitant]
  34. NORCO [Concomitant]
  35. ARIMIDEX [Concomitant]
     Indication: BREAST CANCER
  36. QVAR 40 [Concomitant]
  37. METOCLOPRAMIDE [Concomitant]
  38. DEMEROL [Concomitant]
  39. NYSTATIN [Concomitant]
  40. PROCRIT                            /00909301/ [Concomitant]
  41. ATROPINE [Concomitant]
  42. FUROSEMIDE [Concomitant]
  43. ENSURE [Concomitant]
  44. FASLODEX [Concomitant]
     Indication: BREAST CANCER
  45. TAMOXIFEN CITRATE [Concomitant]
     Indication: BREAST CANCER
  46. IXABEPILONE [Concomitant]
     Indication: BREAST CANCER
  47. GEMZAR [Concomitant]
     Indication: BREAST CANCER
  48. MORPHINE [Concomitant]
  49. ZOFRAN [Concomitant]
  50. NARCAN [Concomitant]
  51. ROMAZICON [Concomitant]
  52. TEMAZEPAM [Concomitant]
  53. SEREVENT [Concomitant]
  54. KEFLEX [Concomitant]
     Dosage: 500 MG / QID
  55. VERSED [Concomitant]
  56. CEPHALEXIN [Concomitant]
  57. OXYCODONE HCL AND ACETAMINOPHEN [Concomitant]
  58. AROMASIN [Concomitant]
     Indication: BREAST CANCER

REACTIONS (45)
  - ANHEDONIA [None]
  - EXPOSED BONE IN JAW [None]
  - TOOTH ABSCESS [None]
  - LOOSE TOOTH [None]
  - ANAEMIA [None]
  - SINUSITIS [None]
  - INJURY [None]
  - PAIN [None]
  - ANXIETY [None]
  - ORAL INFECTION [None]
  - BREATH ODOUR [None]
  - SQUAMOUS CELL CARCINOMA OF SKIN [None]
  - PANCYTOPENIA [None]
  - PHYSICAL DISABILITY [None]
  - FISTULA DISCHARGE [None]
  - OSTEOMYELITIS [None]
  - DIZZINESS [None]
  - PAIN IN JAW [None]
  - LYMPHOEDEMA [None]
  - CACHEXIA [None]
  - CONJUNCTIVAL HAEMORRHAGE [None]
  - RHINITIS ALLERGIC [None]
  - ABDOMINAL PAIN [None]
  - MENTAL DISORDER [None]
  - FATIGUE [None]
  - EXOSTOSIS [None]
  - ORAL PAPILLOMA [None]
  - ADRENAL INSUFFICIENCY [None]
  - NEOPLASM MALIGNANT [None]
  - SWELLING FACE [None]
  - JAW FRACTURE [None]
  - PATHOLOGICAL FRACTURE [None]
  - METASTASES TO BONE [None]
  - POLYNEUROPATHY [None]
  - PAROTITIS [None]
  - OSTEOPENIA [None]
  - ATELECTASIS [None]
  - METASTASES TO CHEST WALL [None]
  - LYMPHANGITIS [None]
  - OSTEONECROSIS OF JAW [None]
  - SWELLING [None]
  - METASTASES TO LIVER [None]
  - METASTASES TO LUNG [None]
  - DYSPHAGIA [None]
  - METASTASES TO RETROPERITONEUM [None]
